FAERS Safety Report 22100434 (Version 1)
Quarter: 2023Q1

REPORT INFORMATION
  Report Type: Other
  Country: IT (occurrence: None)
  Receive Date: 20230316
  Receipt Date: 20230316
  Transmission Date: 20230417
  Serious: No
  Sender: FDA-Public Use
  Company Number: IT-ROCHE-3309982

PATIENT
  Age: 33 Year
  Sex: Female
  Weight: 75 kg

DRUGS (2)
  1. OCRELIZUMAB [Suspect]
     Active Substance: OCRELIZUMAB
     Indication: Relapsing-remitting multiple sclerosis
     Dosage: SUBSEQUENT DOSE RECEIVED ON 14/FEB/2020
     Route: 042
     Dates: start: 20200124, end: 20200124
  2. OCRELIZUMAB [Suspect]
     Active Substance: OCRELIZUMAB
     Dosage: SUBSEQUENT DOSES RECEIVED ON 18/JAN/2021, 12/JUL/2021, 18/FEB/2022, 12/AUG/2022, 27/JAN/2023
     Route: 042
     Dates: start: 20200727, end: 20200727

REACTIONS (1)
  - Oral herpes [Recovered/Resolved]

NARRATIVE: CASE EVENT DATE: 20221223
